FAERS Safety Report 17062706 (Version 1)
Quarter: 2019Q4

REPORT INFORMATION
  Report Type: Spontaneous
  Country: US (occurrence: US)
  Receive Date: 20191023
  Receipt Date: 20191023
  Transmission Date: 20200122
  Serious: No
  Sender: FDA-Public Use
  Company Number: None

PATIENT
  Sex: Female

DRUGS (1)
  1. IMATINIB MESYLATE @ 400MG APOTEX [Suspect]
     Active Substance: IMATINIB MESYLATE
     Indication: CHRONIC LEUKAEMIA
     Route: 048
     Dates: start: 201907

REACTIONS (2)
  - Muscle spasms [None]
  - Swelling face [None]
